FAERS Safety Report 7240092-8 (Version None)
Quarter: 2011Q1

REPORT INFORMATION
  Report Type: 
  Country: None (occurrence: None)
  Receive Date: 20110112
  Receipt Date: 20110106
  Transmission Date: 20110831
  Serious: Yes (Other)
  Sender: FDA-Public Use
  Company Number: 2011MA000119

PATIENT
  Age: 78 Year
  Sex: Male

DRUGS (8)
  1. METOPROLOL [Suspect]
  2. TEMAZEPAM [Suspect]
  3. CELECOXIB [Concomitant]
  4. CLARITIN [Suspect]
     Indication: SINUSITIS
  5. DICLOFENAC SODIUM [Concomitant]
  6. OMEPRAZOLE [Suspect]
  7. NITRATES [Concomitant]
  8. LORAZEPAM [Suspect]
     Indication: ANXIETY

REACTIONS (4)
  - VASCULAR GRAFT [None]
  - GOUT [None]
  - CEREBROVASCULAR ACCIDENT [None]
  - RHEUMATOID ARTHRITIS [None]
